FAERS Safety Report 9224340 (Version 1)
Quarter: 2013Q2

REPORT INFORMATION
  Report Type: Spontaneous
  Country: BR (occurrence: BR)
  Receive Date: 20130411
  Receipt Date: 20130411
  Transmission Date: 20140414
  Serious: Yes (Other)
  Sender: FDA-Public Use
  Company Number: PHHY2013BR034954

PATIENT
  Sex: Female

DRUGS (1)
  1. EXELON PATCH [Suspect]
     Dosage: 13.3 MG, (PATCH 15 CM2) UNK
     Route: 062

REACTIONS (5)
  - Dysentery [Unknown]
  - Abdominal pain [Unknown]
  - Dizziness [Unknown]
  - Agitation [Unknown]
  - Vomiting [Unknown]
